FAERS Safety Report 15728455 (Version 1)
Quarter: 2018Q4

REPORT INFORMATION
  Report Type: Spontaneous
  Country: DK (occurrence: DK)
  Receive Date: 20181217
  Receipt Date: 20181217
  Transmission Date: 20190205
  Serious: Yes (Life-Threatening, Hospitalization)
  Sender: FDA-Public Use
  Company Number: PHHY2018DK186036

PATIENT
  Age: 47 Year
  Sex: Female

DRUGS (12)
  1. TRUXAL [Concomitant]
     Active Substance: CHLORPROTHIXENE
     Indication: SEDATIVE THERAPY
     Dosage: 50 MG, QD
     Route: 048
     Dates: start: 20131017
  2. METOCLOPRAMIDE. [Concomitant]
     Active Substance: METOCLOPRAMIDE
     Indication: ADVERSE DRUG REACTION
     Dosage: 30 MG, (10 MG. DOSIS: 3 TABLETTER PN., H?JST 4 GANGE DAGLIGT.)
     Route: 048
     Dates: start: 20180803
  3. OXABENZ [Concomitant]
     Active Substance: OXAZEPAM
     Indication: SEDATIVE THERAPY
     Dosage: 7.5 MG, (15 MG. DOSIS: 0,5 TABLET PN,HJST 3 GANGE DAGLIGT.)
     Route: 048
  4. ETOPOSIDE. [Suspect]
     Active Substance: ETOPOSIDE
     Indication: SMALL CELL LUNG CANCER
     Dosage: 180 MG, UNK
     Route: 042
  5. IMOZOP [Concomitant]
     Active Substance: ZOPICLONE
     Indication: INSOMNIA
     Dosage: 3.75 MG, QD
     Route: 048
     Dates: start: 20140828
  6. CIRCADIN [Concomitant]
     Active Substance: MELATONIN
     Indication: INSOMNIA
     Dosage: 2 MG, (2 MG: DOSIS: 2-3 TABLETTER P.N.)
     Route: 048
     Dates: start: 20171205
  7. NORITREN [Concomitant]
     Active Substance: NORTRIPTYLINE HYDROCHLORIDE
     Indication: DEPRESSION
     Dosage: 125 MG, QD ( 50 MG + 25 MG)
     Route: 048
     Dates: start: 20131018
  8. PREDNISOLONE. [Concomitant]
     Active Substance: PREDNISOLONE
     Indication: ADRENOCORTICAL STEROID THERAPY
     Dosage: 200 MG, QD
     Route: 048
     Dates: start: 20171223
  9. PANTOLOC [Concomitant]
     Active Substance: PANTOPRAZOLE SODIUM
     Indication: GASTRIC ULCER
     Dosage: 40 MG, QD
     Route: 048
     Dates: start: 20171205
  10. AIROMIR [Concomitant]
     Active Substance: ALBUTEROL SULFATE
     Indication: ASTHMA
     Dosage: 1 ?G/L, (0,1 MG/DOSIS)
     Route: 055
     Dates: start: 20150205
  11. CARBOPLATIN. [Suspect]
     Active Substance: CARBOPLATIN
     Indication: SMALL CELL LUNG CANCER
     Dosage: 540 MG, 1 TOTAL (10 MG/ML. DOSIS: 540 MG SOM ENGANGSDOSIS)
     Route: 042
     Dates: start: 20181029
  12. LITAREX [Concomitant]
     Indication: DEPRESSION
     Dosage: 3.5 ?G/L, QD (6 MMOL LI+.)
     Route: 048
     Dates: start: 20130819

REACTIONS (2)
  - Acute myocardial infarction [Recovering/Resolving]
  - Stenosis [Recovering/Resolving]

NARRATIVE: CASE EVENT DATE: 201811
